FAERS Safety Report 8841026 (Version 1)
Quarter: 2012Q4

REPORT INFORMATION
  Report Type: 
  Country: US (occurrence: US)
  Receive Date: 20121015
  Receipt Date: 20121015
  Transmission Date: 20130627
  Serious: Yes (Death, Other)
  Sender: FDA-Public Use
  Company Number: US-ELI_LILLY_AND_COMPANY-US201210003751

PATIENT
  Sex: Female

DRUGS (2)
  1. BYETTA [Suspect]
     Indication: TYPE 2 DIABETES MELLITUS
     Dosage: UNK, unknown
     Dates: start: 20060125
  2. JANUVIA [Concomitant]
     Dosage: UNK
     Dates: start: 20060125

REACTIONS (2)
  - Pancreatic carcinoma [Fatal]
  - Injury [Unknown]
